FAERS Safety Report 16706149 (Version 2)
Quarter: 2019Q3

REPORT INFORMATION
  Report Type: Spontaneous
  Country: US (occurrence: US)
  Receive Date: 20190815
  Receipt Date: 20190822
  Transmission Date: 20191004
  Serious: Yes (Other)
  Sender: FDA-Public Use
  Company Number: US-RECKITT BENCKISER HEALTHCARE INT LIMITED-RB-88700-2019

PATIENT
  Age: 16 Year
  Sex: Male
  Weight: 65.76 kg

DRUGS (1)
  1. DELSYM [Suspect]
     Active Substance: DEXTROMETHORPHAN
     Indication: PRODUCT USED FOR UNKNOWN INDICATION
     Dosage: AMOUNT USED: ALMOST 5 OZ, SINGLE
     Route: 048
     Dates: start: 20190809

REACTIONS (6)
  - Vomiting [Recovered/Resolved]
  - Ataxia [Recovered/Resolved]
  - Depression [Unknown]
  - Headache [Recovered/Resolved]
  - Overdose [Unknown]
  - Fatigue [Recovered/Resolved]

NARRATIVE: CASE EVENT DATE: 201908
